FAERS Safety Report 14279963 (Version 1)
Quarter: 2017Q4

REPORT INFORMATION
  Report Type: Spontaneous
  Country: US (occurrence: US)
  Receive Date: 20171212
  Receipt Date: 20171212
  Transmission Date: 20180321
  Serious: Yes (Death, Other)
  Sender: FDA-Public Use
  Company Number: US-GILEAD-2017-0309680

PATIENT
  Age: 63 Year
  Sex: Female

DRUGS (11)
  1. XARELTO [Concomitant]
     Active Substance: RIVAROXABAN
  2. CARVEDILOL. [Concomitant]
     Active Substance: CARVEDILOL
  3. FLAXSEED OIL                       /01649403/ [Concomitant]
  4. AMLODIPINE [Concomitant]
     Active Substance: AMLODIPINE BESYLATE
  5. ATIVAN [Concomitant]
     Active Substance: LORAZEPAM
  6. LOSARTAN. [Concomitant]
     Active Substance: LOSARTAN
  7. LANTUS [Concomitant]
     Active Substance: INSULIN GLARGINE
  8. LYRICA [Concomitant]
     Active Substance: PREGABALIN
  9. NOVOLOG [Concomitant]
     Active Substance: INSULIN ASPART
  10. HARVONI [Suspect]
     Active Substance: LEDIPASVIR\SOFOSBUVIR
     Indication: CHRONIC HEPATITIS C
     Dosage: UNK
     Route: 065
     Dates: start: 20170405, end: 20170629
  11. CALCIUM [Concomitant]
     Active Substance: CALCIUM

REACTIONS (1)
  - Myocardial infarction [Fatal]

NARRATIVE: CASE EVENT DATE: 20171028
